FAERS Safety Report 19612722 (Version 1)
Quarter: 2021Q3

REPORT INFORMATION
  Report Type: Spontaneous
  Country: MX (occurrence: MX)
  Receive Date: 20210727
  Receipt Date: 20210727
  Transmission Date: 20211014
  Serious: No
  Sender: FDA-Public Use
  Company Number: MX-UCBSA-2021035074

PATIENT
  Sex: Male

DRUGS (1)
  1. NUBRENZA [Suspect]
     Active Substance: ROTIGOTINE
     Indication: PRODUCT USED FOR UNKNOWN INDICATION
     Dosage: 6MG
     Route: 062

REACTIONS (1)
  - Device issue [Unknown]
